FAERS Safety Report 12535505 (Version 2)
Quarter: 2017Q3

REPORT INFORMATION
  Report Type: Spontaneous
  Country: TR (occurrence: TR)
  Receive Date: 20160707
  Receipt Date: 20170822
  Transmission Date: 20171127
  Serious: Yes (Death, Hospitalization)
  Sender: FDA-Public Use
  Company Number: TR-SUN PHARMACEUTICAL INDUSTRIES LTD-2016R1-119579

PATIENT
  Age: 40 Year
  Sex: Female

DRUGS (1)
  1. DICLOFENAC [Suspect]
     Active Substance: DICLOFENAC
     Indication: OTITIS MEDIA
     Dosage: UNK
     Route: 030

REACTIONS (7)
  - Acute kidney injury [Fatal]
  - Embolia cutis medicamentosa [Fatal]
  - Multiple organ dysfunction syndrome [Fatal]
  - Respiratory distress [Fatal]
  - Oliguria [Fatal]
  - Rhabdomyolysis [Fatal]
  - Sepsis [Fatal]
